FAERS Safety Report 4307178-9 (Version None)
Quarter: 2004Q1

REPORT INFORMATION
  Report Type: 
  Country: None (occurrence: None)
  Receive Date: 20040225
  Receipt Date: 20040213
  Transmission Date: 20041129
  Serious: Yes (Life-Threatening, Hospitalization)
  Sender: FDA-Public Use
  Company Number: WAES 0310USA00867

PATIENT
  Age: 77 Year
  Sex: Male

DRUGS (4)
  1. ZOCOR [Suspect]
     Indication: HYPERLIPIDAEMIA
     Dosage: 5 MG DAILY
     Route: 048
     Dates: start: 19930324, end: 20030313
  2. BENIDIPINE HYDROCHLORIDE [Concomitant]
  3. BISOPROLOL FUMARATE [Concomitant]
  4. VALSARTAN [Concomitant]

REACTIONS (5)
  - CORONARY ARTERY RESTENOSIS [None]
  - DRUG INEFFECTIVE [None]
  - DRUG LEVEL BELOW THERAPEUTIC [None]
  - ENDOCARDITIS [None]
  - MYOCARDIAL INFARCTION [None]
